FAERS Safety Report 6209516-9 (Version None)
Quarter: 2009Q2

REPORT INFORMATION
  Report Type: 
  Country: None (occurrence: None)
  Receive Date: 20090527
  Receipt Date: 20090508
  Transmission Date: 20091009
  Serious: Yes (Hospitalization)
  Sender: FDA-Public Use
  Company Number: 2009-196476-NL

PATIENT
  Age: 1 Month
  Sex: Male

DRUGS (6)
  1. VECURONIUM BROMIDE [Suspect]
     Indication: MUSCLE RELAXANT THERAPY
     Dosage: INTRAVENOUS (NOS)
     Route: 042
     Dates: start: 20090403, end: 20090411
  2. FENTANYL [Suspect]
     Indication: SEDATION
     Dosage: INTRAVENOUS (NOS)
     Route: 042
     Dates: start: 20090331, end: 20090412
  3. DOPAMINE HYDROCHLORIDE [Concomitant]
  4. DOBUTAMINE HYDROCHLORIDE [Concomitant]
  5. AMIKACIN [Concomitant]
  6. CALCIUM GLUCONATE [Concomitant]

REACTIONS (2)
  - ALTERED STATE OF CONSCIOUSNESS [None]
  - HYPOTONIA [None]
